FAERS Safety Report 9527082 (Version 2)
Quarter: 2013Q3

REPORT INFORMATION
  Report Type: Spontaneous
  Country: US (occurrence: US)
  Receive Date: 20130916
  Receipt Date: 20130916
  Transmission Date: 20140515
  Serious: No
  Sender: FDA-Public Use
  Company Number: US-TEVA-386166USA

PATIENT
  Sex: 0

DRUGS (4)
  1. CALCIUM FOLINATE, INJECTION, 10 MG/ML [Suspect]
  2. OXALIPLATIN [Suspect]
  3. FLUOROURACIL [Suspect]
  4. AVASTIN [Suspect]

REACTIONS (3)
  - Vision blurred [Not Recovered/Not Resolved]
  - Dizziness [Not Recovered/Not Resolved]
  - Visual impairment [Not Recovered/Not Resolved]
